FAERS Safety Report 16666723 (Version 1)
Quarter: 2019Q3

REPORT INFORMATION
  Report Type: Spontaneous
  Country: US (occurrence: US)
  Receive Date: 20190805
  Receipt Date: 20190805
  Transmission Date: 20191004
  Serious: Yes (Other)
  Sender: FDA-Public Use
  Company Number: US-ACCORD-102592

PATIENT
  Age: 51 Year
  Sex: Female
  Weight: 68.04 kg

DRUGS (15)
  1. DOCETAXEL ACCORD [Suspect]
     Active Substance: DOCETAXEL
     Indication: BREAST CANCER
     Dosage: EVERY THREE WEEKS
     Dates: start: 20160914, end: 20161116
  2. CLARITIN [Concomitant]
     Active Substance: LORATADINE
     Dates: start: 2013
  3. IRON [Concomitant]
     Active Substance: IRON
     Dates: start: 20160701, end: 2017
  4. ZOLPIDEM [Concomitant]
     Active Substance: ZOLPIDEM TARTRATE
     Dates: start: 20160701, end: 2017
  5. DOCUSATE/DOCUSATE CALCIUM/DOCUSATE POTASSIUM/DOCUSATE SODIUM [Concomitant]
     Dates: start: 20160701, end: 2017
  6. FUROSEMIDE. [Concomitant]
     Active Substance: FUROSEMIDE
     Dates: start: 20160701, end: 2017
  7. DOXORUBICIN [Suspect]
     Active Substance: DOXORUBICIN
     Indication: BREAST CANCER
     Dates: start: 20160713, end: 20160824
  8. ZOFRAN [Concomitant]
     Active Substance: ONDANSETRON HYDROCHLORIDE
     Dates: start: 20160701, end: 2017
  9. POTASSIUM [Concomitant]
     Active Substance: POTASSIUM
     Dates: start: 20160701, end: 2017
  10. CETIRIZINE [Concomitant]
     Active Substance: CETIRIZINE HYDROCHLORIDE
     Dosage: OVER-THE-COUNTER
     Dates: start: 2013
  11. HERCEPTIN [Suspect]
     Active Substance: TRASTUZUMAB
     Indication: BREAST CANCER
     Dosage: EVERY THREE WEEKS
     Dates: start: 20160914, end: 20170822
  12. TOCOPHEROL [Concomitant]
     Active Substance: TOCOPHEROL
     Dates: start: 20160701, end: 2017
  13. CYTOXAN [Suspect]
     Active Substance: CYCLOPHOSPHAMIDE
     Indication: BREAST CANCER
     Dates: start: 20160713, end: 20160824
  14. CITALOPRAM [Concomitant]
     Active Substance: CITALOPRAM HYDROBROMIDE
     Dates: start: 2013
  15. FISH OIL [Concomitant]
     Active Substance: FISH OIL
     Dosage: OVER-THE-COUNTER
     Dates: start: 20160701, end: 2017

REACTIONS (1)
  - Alopecia [Not Recovered/Not Resolved]
